FAERS Safety Report 18284973 (Version 5)
Quarter: 2020Q4

REPORT INFORMATION
  Report Type: Spontaneous
  Country: US (occurrence: US)
  Receive Date: 20200918
  Receipt Date: 20201008
  Transmission Date: 20210113
  Serious: No
  Sender: FDA-Public Use
  Company Number: US-PFIZER INC-2020347662

PATIENT
  Age: 83 Year
  Sex: Female
  Weight: 61.23 kg

DRUGS (1)
  1. IBRANCE [Suspect]
     Active Substance: PALBOCICLIB
     Indication: BREAST CANCER FEMALE
     Dosage: 100 MG, CYCLIC (EVERYDAY, 21 DAYS AND OFF FOR 7 DAYS)
     Route: 048

REACTIONS (4)
  - Onychoclasis [Unknown]
  - Nail disorder [Unknown]
  - Nail growth abnormal [Unknown]
  - Nail discolouration [Unknown]

NARRATIVE: CASE EVENT DATE: 2020
